FAERS Safety Report 16740728 (Version 1)
Quarter: 2019Q3

REPORT INFORMATION
  Report Type: Report from Study
  Country: US (occurrence: US)
  Receive Date: 20190826
  Receipt Date: 20190826
  Transmission Date: 20191005
  Serious: Yes (Congenital Anomaly)
  Sender: FDA-Public Use
  Company Number: US-ROCHE-2390119

PATIENT

DRUGS (1)
  1. OSELTAMIVIR [Suspect]
     Active Substance: OSELTAMIVIR
     Indication: PRODUCT USED FOR UNKNOWN INDICATION
     Route: 064

REACTIONS (9)
  - Dextrocardia [Unknown]
  - Transposition of the great vessels [Unknown]
  - Heart disease congenital [Unknown]
  - Congenital pulmonary valve disorder [Unknown]
  - Heterotaxia [Unknown]
  - Atrioventricular septal defect [Unknown]
  - Foetal exposure during pregnancy [Unknown]
  - Pulmonary valve stenosis [Unknown]
  - Congenital tongue anomaly [Unknown]
